FAERS Safety Report 11702441 (Version 1)
Quarter: 2015Q4

REPORT INFORMATION
  Report Type: Spontaneous
  Country: US (occurrence: US)
  Receive Date: 20151104
  Receipt Date: 20151104
  Transmission Date: 20160304
  Serious: No
  Sender: FDA-Public Use
  Company Number: US-ELI_LILLY_AND_COMPANY-US201101004908

PATIENT
  Sex: Female

DRUGS (2)
  1. FORTEO [Suspect]
     Active Substance: TERIPARATIDE
     Indication: OSTEOPOROSIS
     Dosage: 20 UG, DAILY (1/D)
     Dates: start: 20101208, end: 20110105
  2. DIOVAN [Concomitant]
     Active Substance: VALSARTAN

REACTIONS (7)
  - Myalgia [Recovering/Resolving]
  - Nervousness [Unknown]
  - Palpitations [Recovered/Resolved]
  - Sleep disorder due to a general medical condition [Unknown]
  - Head injury [Unknown]
  - Constipation [Recovering/Resolving]
  - Dizziness [Recovering/Resolving]
